FAERS Safety Report 8001363-0 (Version None)
Quarter: 2011Q4

REPORT INFORMATION
  Report Type: 
  Country: None (occurrence: None)
  Receive Date: 20111219
  Receipt Date: 20111203
  Transmission Date: 20120403
  Serious: Yes (Hospitalization)
  Sender: FDA-Public Use
  Company Number: 2011AP002992

PATIENT
  Age: 48 Year
  Sex: Female

DRUGS (1)
  1. LAMOTRIGINE [Suspect]
     Indication: PRODUCT USED FOR UNKNOWN INDICATION
     Dosage: 7.5 MG

REACTIONS (12)
  - CLONUS [None]
  - HYPERREFLEXIA [None]
  - CIRCULATORY COLLAPSE [None]
  - STATUS EPILEPTICUS [None]
  - TACHYCARDIA [None]
  - PULSE ABSENT [None]
  - HYPOXIC-ISCHAEMIC ENCEPHALOPATHY [None]
  - DRUG LEVEL ABOVE THERAPEUTIC [None]
  - GRAND MAL CONVULSION [None]
  - OVERDOSE [None]
  - COMA SCALE ABNORMAL [None]
  - NODAL ARRHYTHMIA [None]
